FAERS Safety Report 16726751 (Version 1)
Quarter: 2019Q3

REPORT INFORMATION
  Report Type: Spontaneous
  Country: JP (occurrence: JP)
  Receive Date: 20190821
  Receipt Date: 20190821
  Transmission Date: 20191005
  Serious: Yes (Death, Other)
  Sender: FDA-Public Use
  Company Number: JP-PFIZER INC-2019282341

PATIENT
  Age: 76 Year
  Sex: Male

DRUGS (3)
  1. UNASYN-S 1.5G [Suspect]
     Active Substance: AMPICILLIN SODIUM\SULBACTAM SODIUM
     Dosage: 1.5 G, 2X/DAY
     Route: 042
     Dates: start: 20190701, end: 20190701
  2. UNASYN-S 1.5G [Suspect]
     Active Substance: AMPICILLIN SODIUM\SULBACTAM SODIUM
     Indication: PNEUMONIA
     Dosage: 1.5 G, 1X/DAY
     Route: 042
     Dates: start: 20190629, end: 20190630
  3. ZOSYN [Suspect]
     Active Substance: PIPERACILLIN SODIUM\TAZOBACTAM SODIUM
     Dosage: 4.5 G, 2X/DAY
     Route: 041
     Dates: start: 20190702, end: 20190710

REACTIONS (4)
  - Alanine aminotransferase increased [Recovering/Resolving]
  - Death [Fatal]
  - Drug-induced liver injury [Unknown]
  - Aspartate aminotransferase increased [Recovering/Resolving]

NARRATIVE: CASE EVENT DATE: 20190701
